FAERS Safety Report 7155695-9 (Version None)
Quarter: 2010Q4

REPORT INFORMATION
  Report Type: 
  Country: None (occurrence: None)
  Receive Date: 20101214
  Receipt Date: 20100908
  Transmission Date: 20110411
  Serious: Yes (Hospitalization)
  Sender: FDA-Public Use
  Company Number: US-BAYER-200943902NA

PATIENT
  Sex: Female
  Weight: 47.727 kg

DRUGS (7)
  1. YAZ [Suspect]
     Indication: CONTRACEPTION
     Route: 048
     Dates: start: 20090128, end: 20091101
  2. IBUPROFEN [Concomitant]
     Indication: HEADACHE
     Dosage: 800 MG (DAILY DOSE), PRN, UNKNOWN
     Route: 065
     Dates: start: 20080101, end: 20090901
  3. FLUCONAZOLE [Concomitant]
     Route: 065
     Dates: start: 20090101, end: 20090901
  4. HYDROCODONE [Concomitant]
     Dosage: HYDROCODONE/APAP Q4H, PRN
     Route: 048
  5. APAP TAB [Concomitant]
     Dosage: APAP Q4H, PRN
     Route: 065
  6. CEPHALEXIN [Concomitant]
     Route: 065
  7. MULTI-VITAMIN [Concomitant]
     Route: 048

REACTIONS (5)
  - CHOLECYSTECTOMY [None]
  - CHOLECYSTITIS [None]
  - CHOLELITHIASIS [None]
  - INJURY [None]
  - NEPHROLITHIASIS [None]
